FAERS Safety Report 5760269-8 (Version None)
Quarter: 2008Q2

REPORT INFORMATION
  Report Type: 
  Country: None (occurrence: None)
  Receive Date: 20080602
  Receipt Date: 20080520
  Transmission Date: 20081010
  Serious: Yes (Hospitalization)
  Sender: FDA-Public Use
  Company Number: 001099

PATIENT
  Age: 59 Year
  Sex: Male

DRUGS (5)
  1. PLETAL [Suspect]
     Indication: THROMBOSIS PROPHYLAXIS
     Dosage: 200 MG, QD
     Route: 048
  2. ZYVOX [Suspect]
     Indication: ENTEROCOLITIS
     Dosage: 600 MG, BID
     Route: 048
     Dates: start: 20070701, end: 20070801
  3. HERBRESSOR R (DILTIAZEM HYDROCHLORIDE) SLOW RELEASE  CAPSULES [Suspect]
     Indication: HYPERTENSION
     Dosage: 100 MG,QD; ORAL
     Route: 048
  4. MICARDIS [Suspect]
     Indication: HYPERTENSION
     Dosage: 20 MG, QD; ORAL
     Route: 048
  5. ADALAT [Suspect]
     Indication: HYPERTENSION
     Dosage: 20 MG,QD;ORAL
     Route: 048

REACTIONS (1)
  - PORTAL VENOUS GAS [None]
